FAERS Safety Report 10582437 (Version 5)
Quarter: 2019Q3

REPORT INFORMATION
  Report Type: Spontaneous
  Country: JP (occurrence: JP)
  Receive Date: 20141113
  Receipt Date: 20190913
  Transmission Date: 20191004
  Serious: Yes (Death, Hospitalization)
  Sender: FDA-Public Use
  Company Number: JP-BAUSCH-SYM-2014-17388

PATIENT
  Age: 66 Year
  Sex: Male
  Weight: 43 kg

DRUGS (12)
  1. CHOREAZINE TABLETS 12.5 MG (TETRABENAZINE) [Suspect]
     Active Substance: TETRABENAZINE
     Route: 048
     Dates: start: 20130417, end: 20130507
  2. CHOREAZINE TABLETS 12.5 MG (TETRABENAZINE) [Suspect]
     Active Substance: TETRABENAZINE
     Indication: HUNTINGTON^S DISEASE
     Route: 048
     Dates: start: 20130717, end: 20140520
  3. CHOREAZINE TABLETS 12.5 MG (TETRABENAZINE) [Suspect]
     Active Substance: TETRABENAZINE
     Route: 048
     Dates: start: 20130326, end: 20130402
  4. RISPERDAL [Suspect]
     Active Substance: RISPERIDONE
     Indication: HUNTINGTON^S DISEASE
     Route: 048
     Dates: start: 20110625, end: 20140121
  5. YOKUKANSAN [Concomitant]
     Active Substance: HERBALS
     Indication: PRODUCT USED FOR UNKNOWN INDICATION
     Route: 048
     Dates: start: 20110627, end: 20140401
  6. BROTIZOLAM [Suspect]
     Active Substance: BROTIZOLAM
     Indication: HUNTINGTON^S DISEASE
     Route: 048
     Dates: start: 20110705, end: 20140507
  7. CHOREAZINE TABLETS 12.5 MG (TETRABENAZINE) [Suspect]
     Active Substance: TETRABENAZINE
     Dosage: DOSE INCREASED
     Route: 048
     Dates: start: 20130508, end: 20130716
  8. HALOPERIDOL. [Concomitant]
     Active Substance: HALOPERIDOL
     Indication: PRODUCT USED FOR UNKNOWN INDICATION
     Route: 048
     Dates: start: 20140701
  9. CHOREAZINE TABLETS 12.5 MG (TETRABENAZINE) [Suspect]
     Active Substance: TETRABENAZINE
     Route: 048
     Dates: start: 20140521
  10. CHOREAZINE TABLETS 12.5 MG (TETRABENAZINE) [Suspect]
     Active Substance: TETRABENAZINE
     Route: 048
     Dates: start: 201810
  11. ARTANE [Concomitant]
     Active Substance: TRIHEXYPHENIDYL HYDROCHLORIDE
     Indication: PRODUCT USED FOR UNKNOWN INDICATION
     Route: 048
     Dates: start: 20110625, end: 20140121
  12. CHOREAZINE TABLETS 12.5 MG (TETRABENAZINE) [Suspect]
     Active Substance: TETRABENAZINE
     Route: 048
     Dates: start: 20130403, end: 20130416

REACTIONS (3)
  - Pneumonia [Fatal]
  - Dysphagia [Recovered/Resolved]
  - Cerebral infarction [Recovered/Resolved with Sequelae]

NARRATIVE: CASE EVENT DATE: 20130716
